FAERS Safety Report 18988294 (Version 1)
Quarter: 2021Q1

REPORT INFORMATION
  Report Type: Spontaneous
  Country: US (occurrence: US)
  Receive Date: 20210309
  Receipt Date: 20210309
  Transmission Date: 20210420
  Serious: Yes (Other)
  Sender: FDA-Public Use
  Company Number: US-FRESENIUS MEDICAL CARE RENAL THERAPIES GROUP-FMC-2102-000199

PATIENT
  Age: 70 Year
  Sex: Male
  Weight: 190 kg

DRUGS (2)
  1. DELFLEX WITH DEXTROSE 2.5% LOW MAGNESIUM [Suspect]
     Active Substance: CALCIUM CHLORIDE\DEXTROSE\MAGNESIUM CHLORIDE\SODIUM CHLORIDE\SODIUM LACTATE
     Indication: END STAGE RENAL DISEASE
     Dosage: 3500 ML FOR 4 CYCLES WITH A LAST FILL OF 2000 ML AND A DAYTIME EXCHANGE OF ICODEXTRIN AT 3000 ML
     Route: 033
     Dates: start: 20160501
  2. ICODEXTRIN [Suspect]
     Active Substance: ICODEXTRIN
     Indication: END STAGE RENAL DISEASE
     Dosage: 3500 ML FOR 4 CYCLES WITH A LAST FILL OF 2000 ML AND A DAYTIME EXCHANGE OF ICODEXTRIN AT 3000 ML

REACTIONS (1)
  - Peritonitis bacterial [Recovering/Resolving]

NARRATIVE: CASE EVENT DATE: 20210113
